FAERS Safety Report 7928964-X (Version None)
Quarter: 2011Q4

REPORT INFORMATION
  Report Type: 
  Country: None (occurrence: None)
  Receive Date: 20111118
  Receipt Date: 20111111
  Transmission Date: 20120403
  Serious: Yes (Hospitalization)
  Sender: FDA-Public Use
  Company Number: FR-MERCK-1111FRA00055

PATIENT
  Age: 58 Year
  Sex: Male
  Weight: 104 kg

DRUGS (8)
  1. METFORMIN HCL [Suspect]
     Indication: TYPE 2 DIABETES MELLITUS
     Route: 048
     Dates: start: 20091201, end: 20100301
  2. METFORMIN HCL [Suspect]
     Route: 048
     Dates: start: 20100519, end: 20110721
  3. JANUVIA [Suspect]
     Indication: TYPE 2 DIABETES MELLITUS
     Route: 048
     Dates: start: 20100302, end: 20110721
  4. METFORMIN HCL [Suspect]
     Route: 048
     Dates: start: 20110721
  5. METFORMIN HCL [Suspect]
     Route: 048
     Dates: start: 20100527, end: 20110519
  6. METFORMIN HCL [Suspect]
     Indication: TYPE 2 DIABETES MELLITUS
     Route: 048
     Dates: start: 20100302, end: 20100527
  7. GLIMEPIRIDE [Suspect]
     Route: 048
     Dates: start: 20100302, end: 20100928
  8. GLIMEPIRIDE [Suspect]
     Route: 048
     Dates: start: 20100928, end: 20110721

REACTIONS (1)
  - DRUG INEFFECTIVE [None]
